FAERS Safety Report 9272389 (Version 1)
Quarter: 2013Q2

REPORT INFORMATION
  Report Type: Spontaneous
  Country: US (occurrence: US)
  Receive Date: 20130506
  Receipt Date: 20130506
  Transmission Date: 20140414
  Serious: No
  Sender: FDA-Public Use
  Company Number: US-ASTRAZENECA-2012SE90924

PATIENT
  Sex: Female

DRUGS (9)
  1. PRILOSEC OTC [Suspect]
     Indication: PRODUCT USED FOR UNKNOWN INDICATION
     Route: 048
     Dates: start: 20121031
  2. ESTROGEN [Concomitant]
     Dosage: UNKNOWN
  3. VALIUM [Concomitant]
     Dosage: UNKNOWN
  4. ZYRTEC [Concomitant]
     Dosage: UNKNOWN
  5. CELEXA [Concomitant]
     Dosage: UNKNOWN
  6. NUVIGIL [Concomitant]
     Dosage: UNKNOWN
  7. VITAMIN D [Concomitant]
     Dosage: UNKNOWN
  8. MAGNESIUM [Concomitant]
     Dosage: UNKNOWN
  9. SINGULAR [Concomitant]
     Dosage: UNKNOWN

REACTIONS (1)
  - Dysgeusia [Recovered/Resolved]
